FAERS Safety Report 8011809-X (Version None)
Quarter: 2011Q4

REPORT INFORMATION
  Report Type: 
  Country: None (occurrence: None)
  Receive Date: 20111228
  Receipt Date: 20111216
  Transmission Date: 20120403
  Serious: Yes (Other)
  Sender: FDA-Public Use
  Company Number: CHPA2011IT018551

PATIENT
  Sex: Female

DRUGS (4)
  1. ACETAMINOPHEN, ASPIRIN AND CAFFEINE [Suspect]
     Indication: HEADACHE
     Dosage: 1 DF, QD
     Route: 048
     Dates: start: 20111003, end: 20111003
  2. GARDENALE [Concomitant]
     Indication: EPILEPSY
     Dosage: 100 MG, UNK
     Route: 048
  3. TEGRETOL [Concomitant]
     Indication: EPILEPSY
     Dosage: 4.8 G, UNK
     Route: 048
  4. TAPAZOLE [Concomitant]
     Indication: HYPERTHYROIDISM
     Dosage: 5 MG, UNK
     Route: 048
     Dates: start: 20110703, end: 20111003

REACTIONS (1)
  - FACE OEDEMA [None]
